FAERS Safety Report 26206083 (Version 1)
Quarter: 2025Q4

REPORT INFORMATION
  Report Type: Spontaneous
  Country: US (occurrence: US)
  Receive Date: 20251229
  Receipt Date: 20251229
  Transmission Date: 20260118
  Serious: No
  Sender: TEVA
  Company Number: US-ABBVIE-6584803

PATIENT
  Sex: Female

DRUGS (1)
  1. OXYTROL [Suspect]
     Active Substance: OXYBUTYNIN
     Indication: Hypertonic bladder
     Dosage: FOR WOMEN, TRANSDERMAL SOLUTION
     Route: 062

REACTIONS (2)
  - Pruritus [Unknown]
  - Skin irritation [Unknown]
